FAERS Safety Report 19919810 (Version 1)
Quarter: 2021Q4

REPORT INFORMATION
  Report Type: Spontaneous
  Country: US (occurrence: US)
  Receive Date: 20211005
  Receipt Date: 20211005
  Transmission Date: 20220304
  Serious: No
  Sender: FDA-Public Use
  Company Number: US-PFIZER INC-2021005843

PATIENT
  Age: 69 Year
  Sex: Male
  Weight: 97.05 kg

DRUGS (1)
  1. LYRICA [Suspect]
     Active Substance: PREGABALIN
     Indication: Neuropathy peripheral
     Dosage: 100 MG, 2X/DAY
     Dates: start: 2018

REACTIONS (1)
  - Musculoskeletal disorder [Unknown]
